FAERS Safety Report 12590628 (Version 1)
Quarter: 2016Q3

REPORT INFORMATION
  Report Type: Spontaneous
  Country: IN (occurrence: IN)
  Receive Date: 20160726
  Receipt Date: 20160726
  Transmission Date: 20161109
  Serious: No
  Sender: FDA-Public Use
  Company Number: IN-LUPIN PHARMACEUTICALS INC.-E2B_00004887

PATIENT
  Age: 14 Month
  Sex: 0

DRUGS (2)
  1. L-CIN SYRUP 60 ML [Suspect]
     Active Substance: LEVOFLOXACIN
     Indication: PYREXIA
     Route: 048
  2. L-CIN SYRUP 60 ML [Suspect]
     Active Substance: LEVOFLOXACIN
     Indication: OFF LABEL USE

REACTIONS (2)
  - Off label use [Unknown]
  - Vomiting [Unknown]
